FAERS Safety Report 8185080-2 (Version None)
Quarter: 2012Q1

REPORT INFORMATION
  Report Type: 
  Country: None (occurrence: None)
  Receive Date: 20120301
  Receipt Date: 20120214
  Transmission Date: 20120608
  Serious: Yes (Hospitalization)
  Sender: FDA-Public Use
  Company Number: DEP_00572_2012

PATIENT
  Sex: Female
  Weight: 56.6996 kg

DRUGS (9)
  1. XANAX [Concomitant]
  2. DILAUDID [Concomitant]
  3. GRALISE [Suspect]
     Indication: OFF LABEL USE
     Dosage: (STARTED TITRATION DOSING ORAL) ; (600 MG QD ORAL)
     Route: 048
     Dates: start: 20120208, end: 20120213
  4. GRALISE [Suspect]
     Indication: ARTHRALGIA
     Dosage: (STARTED TITRATION DOSING ORAL) ; (600 MG QD ORAL)
     Route: 048
     Dates: start: 20120208, end: 20120213
  5. GRALISE [Suspect]
     Indication: OFF LABEL USE
     Dosage: (STARTED TITRATION DOSING ORAL) ; (600 MG QD ORAL)
     Route: 048
     Dates: start: 20120213
  6. GRALISE [Suspect]
     Indication: ARTHRALGIA
     Dosage: (STARTED TITRATION DOSING ORAL) ; (600 MG QD ORAL)
     Route: 048
     Dates: start: 20120213
  7. OPANA [Concomitant]
  8. TYLENOL (CAPLET) [Concomitant]
  9. LYRICA [Concomitant]

REACTIONS (2)
  - DIZZINESS [None]
  - EYE PAIN [None]
